FAERS Safety Report 9832651 (Version 1)
Quarter: 2014Q1

REPORT INFORMATION
  Report Type: Spontaneous
  Country: IT (occurrence: IT)
  Receive Date: 20140121
  Receipt Date: 20140121
  Transmission Date: 20141002
  Serious: Yes (Other)
  Sender: FDA-Public Use
  Company Number: IT-ROXANE LABORATORIES, INC.-2014-RO-00048RO

PATIENT
  Age: 78 Year
  Sex: Female

DRUGS (4)
  1. LORAZEPAM [Suspect]
     Indication: DEPRESSION
     Dosage: 3 MG
  2. LORAZEPAM [Suspect]
     Indication: ANXIETY
  3. DULOXETINE [Suspect]
     Indication: DEPRESSION
     Dosage: 3 MG
  4. DULOXETINE [Suspect]
     Indication: ANXIETY

REACTIONS (2)
  - Hallucination, visual [Recovered/Resolved]
  - Rapid eye movements sleep abnormal [Not Recovered/Not Resolved]
